FAERS Safety Report 5379385-8 (Version None)
Quarter: 2007Q3

REPORT INFORMATION
  Report Type: 
  Country: None (occurrence: None)
  Receive Date: 20070703
  Receipt Date: 20070627
  Transmission Date: 20080115
  Serious: Yes (Hospitalization)
  Sender: FDA-Public Use
  Company Number: S07-USA-02306-01

PATIENT
  Age: 69 Year
  Sex: Male

DRUGS (2)
  1. LEXAPRO [Suspect]
     Indication: ANXIETY
     Dosage: 10 MG QD PO
     Route: 048
     Dates: start: 20070522, end: 20070526
  2. IBUPROFEN [Concomitant]

REACTIONS (6)
  - AMNESIA [None]
  - CONVULSION [None]
  - EMOTIONAL DISTRESS [None]
  - FATIGUE [None]
  - MALAISE [None]
  - STRESS [None]
